FAERS Safety Report 6013061-3 (Version None)
Quarter: 2008Q4

REPORT INFORMATION
  Report Type: 
  Country: None (occurrence: None)
  Receive Date: 20081219
  Receipt Date: 20081118
  Transmission Date: 20090506
  Serious: No
  Sender: FDA-Public Use
  Company Number: US-BAYER-200838821NA

PATIENT
  Age: 65 Year
  Sex: Female

DRUGS (2)
  1. CIPRO [Suspect]
     Indication: GASTRIC DISORDER
     Route: 048
  2. BENEFIBER [Suspect]
     Indication: MEDICAL DIET
     Dosage: TOTAL DAILY DOSE: 30 ML  UNIT DOSE: 5 ML
     Route: 048
     Dates: start: 20081005

REACTIONS (1)
  - URTICARIA [None]
